FAERS Safety Report 18149537 (Version 1)
Quarter: 2020Q3

REPORT INFORMATION
  Report Type: Spontaneous
  Country: US (occurrence: US)
  Receive Date: 20200814
  Receipt Date: 20200814
  Transmission Date: 20201103
  Serious: No
  Sender: FDA-Public Use
  Company Number: US-LEXICON PHARMACEUTICALS, INC-20-1606-00627

PATIENT
  Age: 59 Year
  Sex: Female

DRUGS (14)
  1. POTASSIUM IODIDE. [Concomitant]
     Active Substance: POTASSIUM IODIDE
  2. LISINOPRIL. [Concomitant]
     Active Substance: LISINOPRIL
  3. ASPIRIN. [Concomitant]
     Active Substance: ASPIRIN
  4. LASIX [Concomitant]
     Active Substance: FUROSEMIDE
  5. CLARITIN [Concomitant]
     Active Substance: LORATADINE
  6. CREON [Concomitant]
     Active Substance: PANCRELIPASE AMYLASE\PANCRELIPASE LIPASE\PANCRELIPASE PROTEASE
  7. SINGULAIR [Concomitant]
     Active Substance: MONTELUKAST SODIUM
  8. XERMELO [Suspect]
     Active Substance: TELOTRISTAT ETHYL
     Indication: METASTASES TO LUNG
     Dates: start: 20200711
  9. OMEPRAZOLE. [Concomitant]
     Active Substance: OMEPRAZOLE
  10. SYNTHROID [Concomitant]
     Active Substance: LEVOTHYROXINE SODIUM
  11. SIMVASTATIN. [Concomitant]
     Active Substance: SIMVASTATIN
  12. CYTOMEL [Concomitant]
     Active Substance: LIOTHYRONINE SODIUM
  13. METFORMIN HYDROCHLORIDE. [Concomitant]
     Active Substance: METFORMIN HYDROCHLORIDE
  14. PROPRANOLOL HYDROCHLORIDE. [Concomitant]
     Active Substance: PROPRANOLOL HYDROCHLORIDE

REACTIONS (1)
  - Flatulence [Unknown]
